FAERS Safety Report 20202230 (Version 3)
Quarter: 2022Q1

REPORT INFORMATION
  Report Type: Report from Study
  Country: CN (occurrence: CN)
  Receive Date: 20211217
  Receipt Date: 20220307
  Transmission Date: 20220423
  Serious: Yes (Life-Threatening, Other)
  Sender: FDA-Public Use
  Company Number: CN-BRISTOL-MYERS SQUIBB COMPANY-BMS-2021-137457

PATIENT
  Age: 62 Year
  Sex: Male
  Weight: 61 kg

DRUGS (24)
  1. NIVOLUMAB [Suspect]
     Active Substance: NIVOLUMAB
     Indication: Non-small cell lung cancer
     Dosage: 360 MILLIGRAM
     Route: 042
     Dates: start: 20201113, end: 20211015
  2. CARBOPLATIN [Suspect]
     Active Substance: CARBOPLATIN
     Indication: Non-small cell lung cancer
     Dosage: 564 MILLIGRAM
     Route: 065
     Dates: start: 20201113, end: 20201229
  3. PACLITAXEL [Suspect]
     Active Substance: PACLITAXEL
     Indication: Non-small cell lung cancer
     Dosage: 296 MILLIGRAM
     Route: 065
     Dates: start: 20201113, end: 20201229
  4. OMEPRAZOLE SODIUM [Concomitant]
     Active Substance: OMEPRAZOLE SODIUM
     Indication: Immune-mediated lung disease
     Dosage: 40 MILLIGRAM, QD
     Route: 042
     Dates: start: 20211104
  5. AMBROXOL HYDROCHLORIDE [Concomitant]
     Active Substance: AMBROXOL HYDROCHLORIDE
     Indication: Immune-mediated lung disease
     Dosage: 30 MILLIGRAM, QD
     Route: 042
     Dates: start: 20211104
  6. CODEINE PHOSPHATE [Concomitant]
     Active Substance: CODEINE PHOSPHATE
     Indication: Immune-mediated lung disease
     Dosage: 30 MILLIGRAM, BID
     Route: 048
     Dates: start: 20211105
  7. METHYLPREDNISOLONE SODIUM SUCCINATE [Concomitant]
     Active Substance: METHYLPREDNISOLONE SODIUM SUCCINATE
     Indication: Immune-mediated lung disease
     Dosage: 60 MILLIGRAM, QD
     Route: 042
     Dates: start: 20211126, end: 20211130
  8. METHYLPREDNISOLONE SODIUM SUCCINATE [Concomitant]
     Active Substance: METHYLPREDNISOLONE SODIUM SUCCINATE
     Dosage: 40 MILLIGRAM, QD
     Route: 042
     Dates: start: 20211201, end: 20211204
  9. METHYLPREDNISOLONE SODIUM SUCCINATE [Concomitant]
     Active Substance: METHYLPREDNISOLONE SODIUM SUCCINATE
     Dosage: 80 MILLIGRAM, QD
     Route: 042
     Dates: start: 20211204, end: 20211208
  10. METHYLPREDNISOLONE SODIUM SUCCINATE [Concomitant]
     Active Substance: METHYLPREDNISOLONE SODIUM SUCCINATE
     Dosage: 80 MILLIGRAM, ONCE
     Route: 042
     Dates: start: 20211209, end: 20211209
  11. METHYLPREDNISOLONE SODIUM SUCCINATE [Concomitant]
     Active Substance: METHYLPREDNISOLONE SODIUM SUCCINATE
     Dosage: 160 MILLIGRAM, QD
     Route: 042
     Dates: start: 20211209
  12. CEFEPIME HYDROCHLORIDE [Concomitant]
     Active Substance: CEFEPIME HYDROCHLORIDE
     Indication: Immune-mediated lung disease
     Dosage: 1 GRAM, TID
     Route: 042
     Dates: start: 20211207
  13. LEVOFLOXACIN HYDROCHLORIDE [Concomitant]
     Active Substance: LEVOFLOXACIN HYDROCHLORIDE
     Indication: Immune-mediated lung disease
     Dosage: 0.5 GRAM, QD
     Route: 042
     Dates: start: 20211206
  14. COMPOUND AMINOPYRINE AND ANTIPYRINE [Concomitant]
     Indication: Immune-mediated lung disease
     Dosage: 1 DOSAGE FORM=3 UNITS NOS, QD
     Route: 030
     Dates: start: 20211206
  15. LYSINE ACETYLSALICYLATE [Concomitant]
     Active Substance: ASPIRIN DL-LYSINE
     Indication: Immune-mediated lung disease
     Dosage: 1.8 GRAM, QD
     Route: 030
     Dates: start: 20211207, end: 20211208
  16. LYSINE ACETYLSALICYLATE [Concomitant]
     Active Substance: ASPIRIN DL-LYSINE
     Dosage: 1.8 GRAM, ONCE
     Route: 042
     Dates: start: 20211209, end: 20211209
  17. VITAMIN C [Concomitant]
     Active Substance: ASCORBIC ACID
     Indication: Immune-mediated lung disease
     Dosage: 1 GRAM, ONCE
     Route: 042
     Dates: start: 20211208
  18. VITAMIN B6 [Concomitant]
     Active Substance: PYRIDOXINE HYDROCHLORIDE
     Indication: Immune-mediated lung disease
     Dosage: 0.2 GRAM, ONCE
     Route: 042
     Dates: start: 20211208
  19. FLUCONAZOLE [Concomitant]
     Active Substance: FLUCONAZOLE
     Indication: Immune-mediated lung disease
     Dosage: 1 DOSAGE FORM=100, ONCE
     Route: 042
     Dates: start: 20211208
  20. AMINOMETHYLBENZOIC ACID [Concomitant]
     Active Substance: AMINOMETHYLBENZOIC ACID
     Indication: Product used for unknown indication
     Dosage: 100 MILLIGRAM, ONCE
     Route: 042
     Dates: start: 20211209
  21. LIDOCAINE HYDROCHLORIDE [Concomitant]
     Active Substance: LIDOCAINE HYDROCHLORIDE
     Indication: Product used for unknown indication
     Dosage: 0.3 GRAM, ONCE
     Route: 055
     Dates: start: 20211209
  22. HUMAN IMMUNOGLOBULIN(PH4) [Concomitant]
     Indication: Immune-mediated lung disease
     Dosage: 12.5 GRAM, QD
     Route: 042
     Dates: start: 20211209
  23. HEMOCOAGULASE [Concomitant]
     Indication: Product used for unknown indication
     Dosage: 1 DOSAGE FORM=1 UNIT NOS, ONCE
     Route: 042
     Dates: start: 20211211, end: 20211211
  24. HEMOCOAGULASE [Concomitant]
     Dosage: 1 DOSAGE FORM=1 UNIT NOS, BID
     Route: 030
     Dates: start: 20211211, end: 20211213

REACTIONS (1)
  - Thrombocytopenia [Not Recovered/Not Resolved]

NARRATIVE: CASE EVENT DATE: 20211212
